FAERS Safety Report 14607770 (Version 1)
Quarter: 2018Q1

REPORT INFORMATION
  Report Type: Report from Study
  Country: MT (occurrence: MT)
  Receive Date: 20180307
  Receipt Date: 20180307
  Transmission Date: 20180509
  Serious: Yes (Other)
  Sender: FDA-Public Use
  Company Number: MT-PFIZER INC-2018090604

PATIENT
  Age: 70 Year
  Sex: Male

DRUGS (12)
  1. ALDACTONE [Suspect]
     Active Substance: SPIRONOLACTONE
     Indication: RENAL DISORDER
     Dosage: 25 MG, UNK
  2. BURINEX [Suspect]
     Active Substance: BUMETANIDE
     Indication: RENAL DISORDER
     Dosage: 3 MG, WEEKLY
  3. CARVEDILOL. [Concomitant]
     Active Substance: CARVEDILOL
     Dosage: 3.125 MG, BID
     Route: 065
  4. BURINEX [Suspect]
     Active Substance: BUMETANIDE
     Indication: FLUID RETENTION
     Dosage: 2 MG, DAILY
     Route: 065
  5. IMDUR [Concomitant]
     Active Substance: ISOSORBIDE MONONITRATE
     Dosage: 60 MG, QD
  6. SACUBITRIL W/VALSARTAN [Suspect]
     Active Substance: SACUBITRIL\VALSARTAN
     Indication: CARDIAC FAILURE
     Dosage: 200 MG, 2X/DAY
     Route: 048
     Dates: start: 201511
  7. CARVEDILOL. [Concomitant]
     Active Substance: CARVEDILOL
     Dosage: 6.25 MG, BID
  8. ASPIRIN /00002701/ [Concomitant]
     Active Substance: ASPIRIN
     Dosage: 75 MG, UNK
  9. AMIODARONE [Concomitant]
     Active Substance: AMIODARONE
     Dosage: 100 MG, QD
  10. VALIUM [Concomitant]
     Active Substance: DIAZEPAM
     Dosage: 5 MG, BID
  11. ATORVASTATIN [Concomitant]
     Active Substance: ATORVASTATIN
     Dosage: 80 MG, QD
  12. IVABRADINE [Concomitant]
     Active Substance: IVABRADINE
     Dosage: 75 MG, BID

REACTIONS (7)
  - Peripheral swelling [Unknown]
  - N-terminal prohormone brain natriuretic peptide increased [Unknown]
  - Pruritus [Not Recovered/Not Resolved]
  - Swelling face [Unknown]
  - Weight increased [Unknown]
  - Pulmonary oedema [Unknown]
  - Fluid retention [Recovered/Resolved]

NARRATIVE: CASE EVENT DATE: 201604
